FAERS Safety Report 15664680 (Version 1)
Quarter: 2018Q4

REPORT INFORMATION
  Report Type: Spontaneous
  Country: CA (occurrence: CA)
  Receive Date: 20181128
  Receipt Date: 20181128
  Transmission Date: 20190205
  Serious: Yes (Other)
  Sender: FDA-Public Use
  Company Number: CA-CELLTRION INC.-2017CA011632

PATIENT

DRUGS (4)
  1. INFLECTRA [Suspect]
     Active Substance: INFLIXIMAB-DYYB
     Indication: ANKYLOSING SPONDYLITIS
     Dosage: 400 MG, CYCLIC (EVERY 0, 2, 6 WEEKS, THEN EVERY 8 WEEKS)
     Route: 042
     Dates: start: 20170602
  2. INFLECTRA [Suspect]
     Active Substance: INFLIXIMAB-DYYB
     Dosage: 500MG, Q (EVERY) 7 WEEKS
     Route: 042
     Dates: start: 20180627
  3. ADVIL [Concomitant]
     Active Substance: IBUPROFEN
     Dosage: 2 DF, PRN
     Route: 065
  4. INFLECTRA [Suspect]
     Active Substance: INFLIXIMAB-DYYB
     Dosage: 500MG, Q (EVERY) 7 WEEKS
     Route: 042
     Dates: start: 20180907

REACTIONS (7)
  - Iritis [Not Recovered/Not Resolved]
  - Headache [Not Recovered/Not Resolved]
  - Eye injury [Unknown]
  - Respiratory tract infection [Not Recovered/Not Resolved]
  - Visual impairment [Not Recovered/Not Resolved]
  - Migraine [Recovering/Resolving]
  - Nervous system disorder [Unknown]

NARRATIVE: CASE EVENT DATE: 201808
